FAERS Safety Report 8987939 (Version 2)
Quarter: 2014Q2

REPORT INFORMATION
  Report Type: Spontaneous
  Country: GB (occurrence: GB)
  Receive Date: 20121227
  Receipt Date: 20131018
  Transmission Date: 20141212
  Serious: Yes (Death, Hospitalization)
  Sender: FDA-Public Use
  Company Number: GB-PFIZER INC-2012327680

PATIENT
  Age: 5 Year
  Sex: Male

DRUGS (1)
  1. PHENYTOIN [Suspect]
     Indication: EPILEPSY
     Dosage: 2800 MG, UNK

REACTIONS (3)
  - Overdose [Fatal]
  - Condition aggravated [Fatal]
  - Cardiac failure [Fatal]
